FAERS Safety Report 15326639 (Version 2)
Quarter: 2018Q3

REPORT INFORMATION
  Report Type: Report from Study
  Country: US (occurrence: US)
  Receive Date: 20180828
  Receipt Date: 20180828
  Transmission Date: 20181010
  Serious: Yes (Hospitalization)
  Sender: FDA-Public Use
  Company Number: US-CELGENEUS-USA-20180807079

PATIENT
  Age: 68 Year
  Sex: Female

DRUGS (6)
  1. RITUXIMAB. [Concomitant]
     Active Substance: RITUXIMAB
     Indication: B-CELL LYMPHOMA
     Dosage: (1ST LINE OF THERAPY)
     Route: 058
     Dates: start: 201804
  2. REVLIMID [Suspect]
     Active Substance: LENALIDOMIDE
     Indication: B-CELL LYMPHOMA
     Dosage: (1ST LINE THERAPY)
     Route: 048
     Dates: start: 201804
  3. DHAP [Concomitant]
     Indication: B-CELL LYMPHOMA
     Dosage: (1ST LINE OF THERAPY)
     Route: 065
     Dates: start: 201804
  4. RITUXIMAB. [Concomitant]
     Active Substance: RITUXIMAB
     Dosage: (2ND LINE OF THERAPY)
     Route: 041
     Dates: start: 2018, end: 201808
  5. REVLIMID [Suspect]
     Active Substance: LENALIDOMIDE
     Indication: OFF LABEL USE
     Dosage: (2ND LINE THERAPY)
     Route: 048
     Dates: start: 2018, end: 201808
  6. DHAP [Concomitant]
     Dosage: (2ND LINE OF THERAPY)
     Route: 065
     Dates: start: 2018, end: 201808

REACTIONS (4)
  - Thrombocytopenia [Unknown]
  - Anaemia [Unknown]
  - Arrhythmia [Unknown]
  - Febrile neutropenia [Unknown]

NARRATIVE: CASE EVENT DATE: 2018
